FAERS Safety Report 16318677 (Version 3)
Quarter: 2019Q3

REPORT INFORMATION
  Report Type: Spontaneous
  Country: US (occurrence: US)
  Receive Date: 20190516
  Receipt Date: 20190712
  Transmission Date: 20191004
  Serious: Yes (Hospitalization)
  Sender: FDA-Public Use
  Company Number: US-ASTRAZENECA-2019SE67395

PATIENT
  Age: 34258 Day
  Sex: Male
  Weight: 68 kg

DRUGS (6)
  1. SYMBICORT [Suspect]
     Active Substance: BUDESONIDE\FORMOTEROL FUMARATE DIHYDRATE
     Indication: CHRONIC OBSTRUCTIVE PULMONARY DISEASE
     Dosage: 160/4.5 MCG, TWO PUFFS TWICE DAILY
     Route: 055
  2. SYMBICORT [Suspect]
     Active Substance: BUDESONIDE\FORMOTEROL FUMARATE DIHYDRATE
     Indication: DYSPNOEA
     Dosage: 160/4.5 MCG, TWO PUFFS TWICE DAILY
     Route: 055
  3. TYLENOL [Concomitant]
     Active Substance: ACETAMINOPHEN
     Route: 065
  4. VENTOLIN [Concomitant]
     Active Substance: ALBUTEROL SULFATE
     Indication: KUSSMAUL RESPIRATION
     Dosage: AS REQUIRED
     Route: 065
  5. VITAMIN D [Concomitant]
     Active Substance: VITAMIN D NOS
     Dosage: ONCE A WEEK
     Route: 065
  6. NASAL SPRAY [Concomitant]
     Active Substance: UNSPECIFIED INGREDIENT
     Indication: KUSSMAUL RESPIRATION
     Dosage: DAILY
     Route: 065

REACTIONS (10)
  - Off label use [Unknown]
  - Intentional product use issue [Recovered/Resolved]
  - Urinary tract infection [Unknown]
  - Fall [Recovered/Resolved]
  - Gait inability [Unknown]
  - Product use in unapproved indication [Unknown]
  - Weight decreased [Unknown]
  - Device failure [Unknown]
  - Dehydration [Unknown]
  - Condition aggravated [Unknown]

NARRATIVE: CASE EVENT DATE: 20190426
